FAERS Safety Report 8535837-0 (Version None)
Quarter: 2012Q3

REPORT INFORMATION
  Report Type: 
  Country: None (occurrence: None)
  Receive Date: 20120725
  Receipt Date: 20120712
  Transmission Date: 20120928
  Serious: No
  Sender: FDA-Public Use
  Company Number: US-ROXANE LABORATORIES, INC.-2012-RO-01464RO

PATIENT
  Age: 70 Year
  Sex: Male

DRUGS (1)
  1. FLUTICASONE PROPIONATE [Suspect]
     Indication: PARANASAL SINUS HYPERSECRETION
     Route: 055

REACTIONS (1)
  - INTRAOCULAR PRESSURE INCREASED [None]
